FAERS Safety Report 7637604-9 (Version None)
Quarter: 2011Q3

REPORT INFORMATION
  Report Type: 
  Country: None (occurrence: None)
  Receive Date: 20110726
  Receipt Date: 20110718
  Transmission Date: 20111222
  Serious: Yes (Other)
  Sender: FDA-Public Use
  Company Number: PHHY2011GB65051

PATIENT
  Age: 42 Year
  Sex: Male

DRUGS (2)
  1. TRIAMCINOLONE [Suspect]
     Indication: ROTATOR CUFF SYNDROME
     Dosage: 2 ML ULTRASOUND-GUIDED BURSAL INJECTION
  2. LIDOCAINE [Suspect]
     Indication: ROTATOR CUFF SYNDROME
     Dosage: 8 ML ULTRASOUND-GUIDED BURSAL INJECTION

REACTIONS (5)
  - CHORIORETINOPATHY [None]
  - VISUAL ACUITY REDUCED [None]
  - VISION BLURRED [None]
  - SCOTOMA [None]
  - RETINAL OEDEMA [None]
